FAERS Safety Report 17734860 (Version 3)
Quarter: 2020Q2

REPORT INFORMATION
  Report Type: Spontaneous
  Country: FR (occurrence: FR)
  Receive Date: 20200501
  Receipt Date: 20200604
  Transmission Date: 20200714
  Serious: Yes (Hospitalization, Other)
  Sender: FDA-Public Use
  Company Number: FR-PFIZER INC-2020171161

PATIENT
  Age: 69 Year
  Sex: Female
  Weight: 86 kg

DRUGS (5)
  1. BIPRETERAX [INDAPAMIDE;PERINDOPRIL ARGININE] [Suspect]
     Active Substance: INDAPAMIDE\PERINDOPRIL ARGININE
     Indication: HYPERTENSION
     Dosage: 1 DF, 1X/DAY
     Route: 048
     Dates: end: 20200318
  2. PARACETAMOL [Concomitant]
     Active Substance: ACETAMINOPHEN
     Indication: INFLUENZA LIKE ILLNESS
     Dosage: UNK
  3. IBUPROFEN. [Suspect]
     Active Substance: IBUPROFEN
     Indication: PAIN
     Dosage: UNK
     Route: 048
     Dates: start: 20200314, end: 20200318
  4. LEVOCETIRIZINE [Suspect]
     Active Substance: LEVOCETIRIZINE
     Dosage: 10 MG, 1X/DAY
     Route: 048
     Dates: end: 20200318
  5. IBUPROFEN. [Suspect]
     Active Substance: IBUPROFEN
     Indication: SCIATICA

REACTIONS (5)
  - COVID-19 [Recovered/Resolved]
  - Acute kidney injury [Recovered/Resolved]
  - Pulmonary embolism [Recovered/Resolved]
  - Hypotension [Recovered/Resolved]
  - Superinfection bacterial [Unknown]

NARRATIVE: CASE EVENT DATE: 20200318
